FAERS Safety Report 4685281-1 (Version None)
Quarter: 2005Q2

REPORT INFORMATION
  Report Type: 
  Country: None (occurrence: None)
  Receive Date: 20050608
  Receipt Date: 20050520
  Transmission Date: 20051028
  Serious: Yes (Hospitalization)
  Sender: FDA-Public Use
  Company Number: CH-ROCHE-405419

PATIENT
  Age: 68 Year
  Sex: Male

DRUGS (8)
  1. TORSEMIDE [Suspect]
     Indication: DRUG USE FOR UNKNOWN INDICATION
     Route: 048
     Dates: end: 20050414
  2. TORSEMIDE [Suspect]
     Dosage: DOSE INCREASED
     Route: 048
     Dates: start: 20050414
  3. TORSEMIDE [Suspect]
     Dosage: DOSE REDUCED.
     Route: 048
  4. ALDACTONE [Suspect]
     Indication: DRUG USE FOR UNKNOWN INDICATION
     Route: 048
     Dates: end: 20050414
  5. COVERSUM [Suspect]
     Indication: DRUG USE FOR UNKNOWN INDICATION
     Route: 048
  6. COVERSUM [Suspect]
     Dosage: DOSE INCREASED.
     Route: 048
     Dates: end: 20050414
  7. CIPROXIN [Suspect]
     Indication: URINARY TRACT INFECTION
     Route: 048
     Dates: start: 20050409, end: 20050414
  8. ZYLORIC [Concomitant]
     Route: 048

REACTIONS (5)
  - DEHYDRATION [None]
  - HYPOTENSION [None]
  - RENAL CYST [None]
  - RENAL FAILURE ACUTE [None]
  - URINARY TRACT INFECTION [None]
